FAERS Safety Report 16228381 (Version 1)
Quarter: 2019Q2

REPORT INFORMATION
  Report Type: Spontaneous
  Country: US (occurrence: US)
  Receive Date: 20190422
  Receipt Date: 20190422
  Transmission Date: 20190711
  Serious: Yes (Disabling)
  Sender: FDA-Public Use
  Company Number: None

PATIENT
  Age: 39 Year
  Sex: Male
  Weight: 123.3 kg

DRUGS (7)
  1. TALTZ [Suspect]
     Active Substance: IXEKIZUMAB
     Indication: PSORIATIC ARTHROPATHY
     Dosage: ?          OTHER FREQUENCY:ONCE A MONTH;OTHER ROUTE:INJECRION?
     Dates: start: 20190224
  2. ASTHMA INHALER [Concomitant]
     Active Substance: UNSPECIFIED INGREDIENT
  3. XIFAFAN [Concomitant]
  4. TALTZ [Concomitant]
     Active Substance: IXEKIZUMAB
  5. MESTINON [Concomitant]
     Active Substance: PYRIDOSTIGMINE BROMIDE
  6. TYLENOL [Concomitant]
     Active Substance: ACETAMINOPHEN
  7. LOSARTAN. [Concomitant]
     Active Substance: LOSARTAN

REACTIONS (1)
  - Depression [None]

NARRATIVE: CASE EVENT DATE: 20190328
